FAERS Safety Report 18418407 (Version 3)
Quarter: 2021Q1

REPORT INFORMATION
  Report Type: Spontaneous
  Country: US (occurrence: US)
  Receive Date: 20201023
  Receipt Date: 20210324
  Transmission Date: 20210419
  Serious: No
  Sender: FDA-Public Use
  Company Number: US-SA-2020SA295115

PATIENT
  Age: 8 Year
  Sex: Male
  Weight: 24 kg

DRUGS (2)
  1. DUPIXENT [Suspect]
     Active Substance: DUPILUMAB
     Indication: DERMATITIS ATOPIC
     Dosage: 400 MG, 1X
     Route: 058
     Dates: start: 20201020, end: 20201020
  2. DUPIXENT [Suspect]
     Active Substance: DUPILUMAB
     Dosage: 200 MG, QOW
     Route: 058
     Dates: start: 2020

REACTIONS (6)
  - Arthralgia [Unknown]
  - Dry eye [Unknown]
  - Rash [Unknown]
  - Off label use [Unknown]
  - Ocular hyperaemia [Unknown]
  - Pain [Unknown]

NARRATIVE: CASE EVENT DATE: 20201020
